FAERS Safety Report 18575375 (Version 1)
Quarter: 2020Q4

REPORT INFORMATION
  Report Type: Spontaneous
  Country: US (occurrence: US)
  Receive Date: 20201203
  Receipt Date: 20201203
  Transmission Date: 20210114
  Serious: Yes (Other)
  Sender: FDA-Public Use
  Company Number: US-HIKMA PHARMACEUTICALS USA INC.-US-H14001-20-05435

PATIENT
  Sex: Female
  Weight: 58.06 kg

DRUGS (1)
  1. METHOTREXATE. [Suspect]
     Active Substance: METHOTREXATE
     Indication: RHEUMATOID ARTHRITIS
     Route: 065
     Dates: end: 202011

REACTIONS (6)
  - Weight decreased [Unknown]
  - Pain [Unknown]
  - Feeling abnormal [Unknown]
  - Amnesia [Unknown]
  - Musculoskeletal disorder [Unknown]
  - Insomnia [Unknown]
